FAERS Safety Report 4583061-9 (Version None)
Quarter: 2005Q1

REPORT INFORMATION
  Report Type: 
  Country: None (occurrence: None)
  Receive Date: 20050125
  Receipt Date: 20040916
  Transmission Date: 20050727
  Serious: No
  Sender: FDA-Public Use
  Company Number: USA041080042

PATIENT
  Age: 74 Year
  Sex: Female
  Weight: 61 kg

DRUGS (6)
  1. FORTEO [Suspect]
     Indication: OSTEOPOROSIS
     Dates: start: 20030826
  2. VIOXX [Concomitant]
  3. CELEBREX [Concomitant]
  4. MICARDIS [Concomitant]
  5. LIPITOR [Concomitant]
  6. DITROPAN [Concomitant]

REACTIONS (1)
  - ALOPECIA [None]
